FAERS Safety Report 5024119-X (Version None)
Quarter: 2006Q2

REPORT INFORMATION
  Report Type: 
  Country: None (occurrence: None)
  Receive Date: 20060607
  Receipt Date: 20060522
  Transmission Date: 20061013
  Serious: Yes (Death)
  Sender: FDA-Public Use
  Company Number: 225629

PATIENT
  Age: 75 Year
  Sex: 0

DRUGS (2)
  1. AVASTIN [Suspect]
     Indication: RENAL CELL CARCINOMA STAGE UNSPECIFIED
  2. CCI-779(TEMSIROLIMUS) [Suspect]
     Indication: RENAL CELL CARCINOMA STAGE UNSPECIFIED

REACTIONS (7)
  - ANAEMIA [None]
  - ASCITES [None]
  - DYSPEPSIA [None]
  - DYSPNOEA [None]
  - HAEMOGLOBIN DECREASED [None]
  - PERITONEAL HAEMORRHAGE [None]
  - VOMITING [None]
